FAERS Safety Report 8499804 (Version 5)
Quarter: 2014Q1

REPORT INFORMATION
  Report Type: Spontaneous
  Country: US (occurrence: US)
  Receive Date: 20120409
  Receipt Date: 20140314
  Transmission Date: 20141002
  Serious: Yes (Other)
  Sender: FDA-Public Use
  Company Number: US-ASTRAZENECA-2012SE21432

PATIENT
  Age: 65 Year
  Sex: Female
  Weight: 68 kg

DRUGS (2)
  1. SYMBICORT PMDI [Suspect]
     Indication: EMPHYSEMA
     Dosage: 160/4.5, 2 PUFFS BID
     Route: 055
  2. SPIRIVA [Concomitant]
     Indication: EMPHYSEMA
     Dosage: 18MCG, 2 PUFFS DAILY

REACTIONS (9)
  - Ankle fracture [Unknown]
  - Dyspnoea [Unknown]
  - Weight decreased [Unknown]
  - Weight increased [Unknown]
  - Hypophagia [Unknown]
  - Condition aggravated [Unknown]
  - Dyspnoea [Unknown]
  - Circumstance or information capable of leading to medication error [Unknown]
  - Intentional drug misuse [Unknown]
